FAERS Safety Report 23345955 (Version 1)
Quarter: 2023Q4

REPORT INFORMATION
  Report Type: Spontaneous
  Country: US (occurrence: US)
  Receive Date: 20231228
  Receipt Date: 20231228
  Transmission Date: 20240109
  Serious: No
  Sender: FDA-Public Use
  Company Number: US-LEO Pharma-366303

PATIENT
  Age: 30 Year
  Sex: Male

DRUGS (1)
  1. ADBRY [Suspect]
     Active Substance: TRALOKINUMAB-LDRM
     Indication: Dermatitis atopic
     Dosage: REPORTED AS ONGOING
     Dates: start: 202309

REACTIONS (3)
  - Rash [Unknown]
  - Dermatitis atopic [Unknown]
  - Epistaxis [Unknown]

NARRATIVE: CASE EVENT DATE: 20231121
